FAERS Safety Report 9830880 (Version 2)
Quarter: 2014Q2

REPORT INFORMATION
  Report Type: Report from Study
  Country: GB (occurrence: GB)
  Receive Date: 20140120
  Receipt Date: 20140408
  Transmission Date: 20141212
  Serious: Yes (Hospitalization)
  Sender: FDA-Public Use
  Company Number: PHFR2014GB000658

PATIENT
  Age: 19 Year
  Sex: Female
  Weight: 63.9 kg

DRUGS (2)
  1. ILARIS [Suspect]
     Indication: CRYOPYRIN ASSOCIATED PERIODIC SYNDROME
     Dosage: 300 MG
     Route: 058
     Dates: start: 20120628
  2. PNEUMOVAX [Suspect]
     Dosage: 0.5 ML, UNK
     Dates: start: 20140103

REACTIONS (6)
  - Cellulitis [Recovered/Resolved]
  - Swelling [Recovered/Resolved]
  - Injection site erythema [Recovered/Resolved]
  - Injection site rash [Recovered/Resolved]
  - Pyrexia [Recovered/Resolved]
  - Pain in extremity [Recovered/Resolved]
